FAERS Safety Report 9351581 (Version 1)
Quarter: 2013Q2

REPORT INFORMATION
  Report Type: Spontaneous
  Country: US (occurrence: US)
  Receive Date: 20130617
  Receipt Date: 20130617
  Transmission Date: 20140414
  Serious: Yes (Other)
  Sender: FDA-Public Use
  Company Number: US-TEVA-412663USA

PATIENT
  Age: 29 Year
  Sex: Female
  Weight: 74.91 kg

DRUGS (5)
  1. PARAGARD 380A [Suspect]
     Indication: CONTRACEPTION
     Dates: start: 201009, end: 20130418
  2. METFORMIN [Concomitant]
     Indication: POLYCYSTIC OVARIES
  3. TRAMADOL [Concomitant]
  4. VITAMIN B12 [Concomitant]
     Indication: VITAMIN B12 DEFICIENCY
  5. VITAMIN D [Concomitant]
     Indication: VITAMIN D DEFICIENCY

REACTIONS (2)
  - Vaginal laceration [Not Recovered/Not Resolved]
  - Device allergy [Unknown]
